FAERS Safety Report 8325005-X (Version None)
Quarter: 2012Q2

REPORT INFORMATION
  Report Type: 
  Country: None (occurrence: None)
  Receive Date: 20120427
  Receipt Date: 20120417
  Transmission Date: 20120825
  Serious: Yes (Hospitalization)
  Sender: FDA-Public Use
  Company Number: 2012P1016643

PATIENT

DRUGS (1)
  1. PEPCID [Suspect]
     Dosage: PO
     Route: 048

REACTIONS (1)
  - HEPATIC FUNCTION ABNORMAL [None]
